FAERS Safety Report 19485619 (Version 3)
Quarter: 2021Q3

REPORT INFORMATION
  Report Type: Spontaneous
  Country: RW (occurrence: RW)
  Receive Date: 20210702
  Receipt Date: 20210823
  Transmission Date: 20211014
  Serious: Yes (Death, Other)
  Sender: FDA-Public Use
  Company Number: NVSC2021RW147947

PATIENT
  Sex: Female

DRUGS (1)
  1. GLIVEC [Suspect]
     Active Substance: IMATINIB MESYLATE
     Indication: CHRONIC MYELOID LEUKAEMIA
     Dosage: 400 MG (4 X 100MG TABLETS), QD
     Route: 065
     Dates: start: 2014

REACTIONS (3)
  - Chronic myeloid leukaemia transformation [Fatal]
  - Hepatic mass [Fatal]
  - Pneumonia [Fatal]
